FAERS Safety Report 18446675 (Version 1)
Quarter: 2020Q4

REPORT INFORMATION
  Report Type: Spontaneous
  Country: JP (occurrence: JP)
  Receive Date: 20201030
  Receipt Date: 20201030
  Transmission Date: 20210114
  Serious: Yes (Hospitalization, Other)
  Sender: FDA-Public Use
  Company Number: JP-BAYER-2020-227786

PATIENT
  Age: 6 Decade
  Sex: Male

DRUGS (1)
  1. STIVARGA [Suspect]
     Active Substance: REGORAFENIB

REACTIONS (4)
  - Metastases to liver [None]
  - Intestinal metastasis [None]
  - Gastrointestinal perforation [Recovered/Resolved]
  - Colon cancer metastatic [None]
